FAERS Safety Report 10371152 (Version 3)
Quarter: 2014Q4

REPORT INFORMATION
  Report Type: Spontaneous
  Country: IT (occurrence: IT)
  Receive Date: 20140808
  Receipt Date: 20141112
  Transmission Date: 20150528
  Serious: Yes (Hospitalization)
  Sender: FDA-Public Use
  Company Number: IT-009507513-1408ITA002928

PATIENT
  Age: 63 Year
  Sex: Female

DRUGS (1)
  1. NORFLOXACIN [Suspect]
     Active Substance: NORFLOXACIN
     Indication: URINARY TRACT INFECTION BACTERIAL
     Dosage: 1 DOSE UNIT TOTAL
     Route: 048
     Dates: start: 20140716, end: 20140716

REACTIONS (2)
  - Face oedema [Recovering/Resolving]
  - Throat tightness [Recovering/Resolving]

NARRATIVE: CASE EVENT DATE: 20140716
